FAERS Safety Report 6247552-7 (Version None)
Quarter: 2009Q2

REPORT INFORMATION
  Report Type: 
  Country: None (occurrence: None)
  Receive Date: 20090626
  Receipt Date: 20090615
  Transmission Date: 20091009
  Serious: Yes (Other)
  Sender: FDA-Public Use
  Company Number: ES-GENENTECH-285523

PATIENT
  Sex: Female

DRUGS (5)
  1. HERCEPTIN [Suspect]
     Indication: BREAST CANCER
     Dosage: 4 MG/KG, UNK
     Route: 042
  2. HERCEPTIN [Suspect]
     Dosage: 2 MG/KG, 1/WEEK
     Route: 042
  3. MYOCET [Suspect]
     Indication: BREAST CANCER
     Dosage: 50 MG/M2, Q3W
     Route: 065
  4. DOCETAXEL [Suspect]
     Indication: BREAST CANCER
     Dosage: 60 MG/M2, Q3W
     Route: 065
  5. PEGFILGRASTIM [Suspect]
     Indication: PROPHYLAXIS
     Dosage: UNK
     Route: 065

REACTIONS (6)
  - ASTHENIA [None]
  - DIARRHOEA [None]
  - FEBRILE NEUTROPENIA [None]
  - LEUKOPENIA [None]
  - NEUTROPENIA [None]
  - STOMATITIS [None]
